FAERS Safety Report 17982573 (Version 1)
Quarter: 2020Q3

REPORT INFORMATION
  Report Type: Spontaneous
  Country: SY (occurrence: SY)
  Receive Date: 20200703
  Receipt Date: 20200703
  Transmission Date: 20201103
  Serious: No
  Sender: FDA-Public Use
  Company Number: None

PATIENT
  Age: 39 Year
  Sex: Female
  Weight: 70 kg

DRUGS (1)
  1. LUMIGAN [Suspect]
     Active Substance: BIMATOPROST
     Indication: EYE DISORDER
     Route: 061
     Dates: start: 20190304, end: 20190306

REACTIONS (1)
  - Iris discolouration [None]

NARRATIVE: CASE EVENT DATE: 20190306
